FAERS Safety Report 6463196-6 (Version None)
Quarter: 2009Q4

REPORT INFORMATION
  Report Type: 
  Country: None (occurrence: None)
  Receive Date: 20091124
  Receipt Date: 20091116
  Transmission Date: 20100525
  Serious: Yes (Death, Hospitalization)
  Sender: FDA-Public Use
  Company Number: 2009AC000130

PATIENT
  Age: 51 Year
  Sex: Male

DRUGS (23)
  1. DIGOXIN [Suspect]
     Dosage: 0.25 MG; QD; PO
     Route: 048
     Dates: start: 20061107, end: 20070523
  2. DIGOXIN [Suspect]
     Dosage: 0.375 MG; QD
     Dates: start: 19891001
  3. LASIX [Concomitant]
  4. COREG [Concomitant]
  5. PHOSLO [Concomitant]
  6. LIPITOR [Concomitant]
  7. ACTOS [Concomitant]
  8. GEMFIBROZIL [Concomitant]
  9. CLONIDINE HCL [Concomitant]
  10. DIOVAN [Concomitant]
  11. LEVITRA [Concomitant]
  12. FERROUS SULFATE TAB [Concomitant]
  13. LAMICTAL [Concomitant]
  14. ALPRAZOLAM [Concomitant]
  15. CITALOPRAM HYDROBROMIDE [Concomitant]
  16. FOLIC ACID [Concomitant]
  17. BRIMONIDINE [Concomitant]
  18. EPINEPHRINE [Concomitant]
  19. ATROPINE [Concomitant]
  20. DEXTROSE [Concomitant]
  21. AMIODARONE HCL [Concomitant]
  22. LIDOCAINE [Concomitant]
  23. VANCOMYCIN [Concomitant]

REACTIONS (31)
  - ANOXIA [None]
  - ARRHYTHMIA [None]
  - CARDIAC ARREST [None]
  - CARDIOMYOPATHY [None]
  - CORNEAL REFLEX DECREASED [None]
  - DEAFNESS BILATERAL [None]
  - DIABETES MELLITUS [None]
  - ECONOMIC PROBLEM [None]
  - ELECTROMECHANICAL DISSOCIATION [None]
  - EXTRASYSTOLES [None]
  - FALL [None]
  - GLAUCOMA [None]
  - HYPHAEMA [None]
  - HYPOTENSION [None]
  - HYPOXIC ENCEPHALOPATHY [None]
  - ISCHAEMIC HEPATITIS [None]
  - MULTI-ORGAN FAILURE [None]
  - PNEUMONIA ASPIRATION [None]
  - POLYCYTHAEMIA [None]
  - PULMONARY HYPERTENSION [None]
  - PUPIL FIXED [None]
  - PYREXIA [None]
  - RASH [None]
  - RENAL FAILURE [None]
  - RENAL FAILURE ACUTE [None]
  - RENAL TUBULAR NECROSIS [None]
  - RESPIRATORY FAILURE [None]
  - THROMBOCYTOPENIA [None]
  - VENTRICULAR FIBRILLATION [None]
  - VENTRICULAR TACHYCARDIA [None]
  - WHITE BLOOD CELL COUNT INCREASED [None]
